FAERS Safety Report 7571140 (Version 4)
Quarter: 2014Q2

REPORT INFORMATION
  Report Type: Report from Study
  Country: SE (occurrence: SE)
  Receive Date: 20100902
  Receipt Date: 20140424
  Transmission Date: 20141212
  Serious: Yes (Death, Other)
  Sender: FDA-Public Use
  Company Number: SE-CELGENEUS-150-21880-10082241

PATIENT
  Age: 81 Year
  Sex: Male

DRUGS (8)
  1. REVLIMID [Suspect]
     Indication: MANTLE CELL LYMPHOMA
     Dosage: 5 MILLIGRAM
     Route: 048
     Dates: start: 20091110, end: 20100221
  2. BENDAMUSTINE [Suspect]
     Indication: MANTLE CELL LYMPHOMA
     Route: 065
     Dates: start: 20091110, end: 20100309
  3. RITUXIMAB [Suspect]
     Indication: MANTLE CELL LYMPHOMA
     Route: 065
     Dates: start: 20091110, end: 20100309
  4. FENTANYL [Concomitant]
     Indication: PAIN
     Dosage: 1200 MILLIGRAM
     Route: 065
  5. VALACICLOVIR [Concomitant]
     Indication: HERPES ZOSTER
     Dosage: 500 MILLIGRAM
     Route: 065
     Dates: start: 2009
  6. GABAPENTIN [Concomitant]
     Indication: PAIN
     Dosage: 1800 MILLIGRAM
     Route: 065
  7. TRYPTIZOL [Concomitant]
     Indication: PAIN
     Dosage: 25 MILLIGRAM
     Route: 065
  8. PARACETAMOL [Concomitant]
     Indication: PAIN
     Dosage: 4 MILLIGRAM
     Route: 065

REACTIONS (2)
  - Chronic myelomonocytic leukaemia [Fatal]
  - Neutropenia [Recovered/Resolved]
